FAERS Safety Report 4631535-4 (Version None)
Quarter: 2005Q2

REPORT INFORMATION
  Report Type: 
  Country: None (occurrence: None)
  Receive Date: 20050407
  Receipt Date: 20050329
  Transmission Date: 20051028
  Serious: Yes (Hospitalization)
  Sender: FDA-Public Use
  Company Number: 200502510

PATIENT
  Age: 48 Year
  Sex: Female

DRUGS (6)
  1. BOTOX [Suspect]
     Indication: SKIN WRINKLING
     Dosage: 20 UNITS ONCE IM
     Route: 030
     Dates: start: 20050328
  2. ESTRATEST [Concomitant]
  3. SYNTHROID [Concomitant]
  4. PAXIL [Concomitant]
  5. LIPITOR [Concomitant]
  6. AMBIEN [Concomitant]

REACTIONS (9)
  - AMNESIA [None]
  - ASTHENIA [None]
  - CONFUSIONAL STATE [None]
  - CSF LYMPHOCYTE COUNT INCREASED [None]
  - ENCEPHALITIS VIRAL [None]
  - FACIAL PALSY [None]
  - HEADACHE [None]
  - LETHARGY [None]
  - MENINGITIS VIRAL [None]
